FAERS Safety Report 10062769 (Version 1)
Quarter: 2014Q2

REPORT INFORMATION
  Report Type: Spontaneous
  Country: PL (occurrence: PL)
  Receive Date: 20140407
  Receipt Date: 20140407
  Transmission Date: 20141212
  Serious: Yes (Other)
  Sender: FDA-Public Use
  Company Number: PL-TEVA-472541ISR

PATIENT
  Age: 33 Year
  Sex: Female
  Weight: 50 kg

DRUGS (1)
  1. ZAMUR [Suspect]
     Indication: PHARYNGITIS
     Dosage: 1000 MILLIGRAM DAILY;
     Route: 048
     Dates: start: 20140324, end: 20140324

REACTIONS (1)
  - Haematemesis [Recovered/Resolved]
